FAERS Safety Report 13000517 (Version 2)
Quarter: 2018Q2

REPORT INFORMATION
  Report Type: Spontaneous
  Country: JP (occurrence: JP)
  Receive Date: 20161206
  Receipt Date: 20180430
  Transmission Date: 20180711
  Serious: Yes (Death, Hospitalization, Other)
  Sender: FDA-Public Use
  Company Number: JP-ROCHE-1822291

PATIENT
  Age: 71 Year
  Sex: Female
  Weight: 48 kg

DRUGS (6)
  1. FAMOTIDINE. [Concomitant]
     Active Substance: FAMOTIDINE
     Dosage: SINGLE DOSE ADMINISTRATION?DOSAGE IS UNCERTAIN.
     Route: 065
     Dates: start: 20160615, end: 20160615
  2. RINDERON V [Concomitant]
     Active Substance: BETAMETHASONE VALERATE
     Dosage: DOSAGE IS UNCERTAIN.
     Route: 048
     Dates: start: 20160810, end: 20160817
  3. MELOXICAM. [Concomitant]
     Active Substance: MELOXICAM
     Dosage: DOSAGE IS UNCERTAIN.
     Route: 048
     Dates: start: 20160706, end: 20160823
  4. PACLITAXEL. [Concomitant]
     Active Substance: PACLITAXEL
     Indication: CERVIX CARCINOMA
     Dosage: SINGLE DOSE ADMINISTRATION?DOSAGE IS UNCERTAIN.
     Route: 041
     Dates: start: 20160615, end: 20160615
  5. DEXART [Concomitant]
     Active Substance: DEXAMETHASONE SODIUM PHOSPHATE
     Dosage: SINGLE DOSE ADMINISTRATION?DOSAGE IS UNCERTAIN.
     Route: 065
     Dates: start: 20160615, end: 20160615
  6. AVASTIN [Suspect]
     Active Substance: BEVACIZUMAB
     Indication: CERVIX CARCINOMA
     Route: 041
     Dates: start: 20160615, end: 20160817

REACTIONS (4)
  - Cervix carcinoma [Fatal]
  - Platelet count decreased [Unknown]
  - Small intestinal perforation [Recovering/Resolving]
  - Decreased appetite [Unknown]

NARRATIVE: CASE EVENT DATE: 20160822
